FAERS Safety Report 4554919-1 (Version None)
Quarter: 2005Q1

REPORT INFORMATION
  Report Type: 
  Country: None (occurrence: None)
  Receive Date: 20050118
  Receipt Date: 20050113
  Transmission Date: 20050727
  Serious: Yes (Life-Threatening)
  Sender: FDA-Public Use
  Company Number: US-BRISTOL-MYERS SQUIBB COMPANY-12824843

PATIENT
  Age: 34 Year
  Sex: Male
  Weight: 79 kg

DRUGS (5)
  1. ZERIT [Suspect]
     Route: 048
     Dates: start: 20010814
  2. SUSTIVA [Suspect]
     Route: 048
     Dates: start: 20030827
  3. EPIVIR [Suspect]
     Route: 048
     Dates: start: 20010814
  4. ABACAVIR [Suspect]
     Route: 048
     Dates: start: 20030508
  5. VALTREX [Concomitant]
     Dosage: 1/2 DOSAGE FORM TWICE DAILY

REACTIONS (4)
  - BLOOD CHOLESTEROL INCREASED [None]
  - BLOOD CREATINE PHOSPHOKINASE INCREASED [None]
  - HYPERLIPIDAEMIA [None]
  - LOW DENSITY LIPOPROTEIN INCREASED [None]
